FAERS Safety Report 24766632 (Version 1)
Quarter: 2024Q4

REPORT INFORMATION
  Report Type: Spontaneous
  Country: US (occurrence: US)
  Receive Date: 20241223
  Receipt Date: 20241223
  Transmission Date: 20250114
  Serious: No
  Sender: DR REDDYS
  Company Number: US-DRL-USA-SPO/USA/24/0016897

PATIENT
  Sex: Male

DRUGS (1)
  1. SUMATRIPTAN SUCCINATE [Suspect]
     Active Substance: SUMATRIPTAN SUCCINATE
     Indication: Product used for unknown indication
     Dosage: SUMATRIPTAN SUCCINATE INJECTION USP, AUTO-INJECTION SYSTEM 6 MG/0.5 ML  COUNT (2 IN 1 CARTON)
     Route: 065

REACTIONS (5)
  - Needle issue [Unknown]
  - Device delivery system issue [Unknown]
  - Injection site pain [Unknown]
  - Incorrect dose administered by device [Unknown]
  - Device delivery system issue [Unknown]
